FAERS Safety Report 7926349-3 (Version None)
Quarter: 2011Q4

REPORT INFORMATION
  Report Type: 
  Country: None (occurrence: None)
  Receive Date: 20111118
  Receipt Date: 20111117
  Transmission Date: 20120403
  Serious: No
  Sender: FDA-Public Use
  Company Number: US-BIOGENIDEC-2011BI038868

PATIENT
  Age: 38 Year
  Sex: Female

DRUGS (1)
  1. TYSABRI [Suspect]
     Indication: MULTIPLE SCLEROSIS
     Route: 042
     Dates: start: 20110914, end: 20111011

REACTIONS (12)
  - CHEST PAIN [None]
  - FATIGUE [None]
  - NAUSEA [None]
  - FEELING COLD [None]
  - LUNG INFECTION [None]
  - FACIAL PAIN [None]
  - FEELING HOT [None]
  - DYSPNOEA [None]
  - ABDOMINAL DISTENSION [None]
  - TREMOR [None]
  - ANTIBODY TEST POSITIVE [None]
  - CHILLS [None]
